FAERS Safety Report 15699160 (Version 1)
Quarter: 2018Q4

REPORT INFORMATION
  Report Type: Spontaneous
  Country: US (occurrence: US)
  Receive Date: 20181207
  Receipt Date: 20181207
  Transmission Date: 20190205
  Serious: Yes (Other)
  Sender: FDA-Public Use
  Company Number: None

PATIENT
  Age: 24 Year
  Sex: Female
  Weight: 69.3 kg

DRUGS (1)
  1. TRIAMCINONE ACETONIDE OINTMENT USP 0.1 % [Suspect]
     Active Substance: TRIAMCINOLONE ACETONIDE
     Indication: ECZEMA
     Dosage: ?          QUANTITY:1 TUBE;?
     Route: 061
     Dates: start: 20100101, end: 20181203

REACTIONS (8)
  - Dermatitis atopic [None]
  - Eye swelling [None]
  - Drug ineffective [None]
  - Fatigue [None]
  - Urinary tract disorder [None]
  - Skin burning sensation [None]
  - Application site hypersensitivity [None]
  - Thirst [None]

NARRATIVE: CASE EVENT DATE: 20181201
